FAERS Safety Report 21266475 (Version 1)
Quarter: 2022Q3

REPORT INFORMATION
  Report Type: Report from Study
  Country: TW (occurrence: None)
  Receive Date: 20220829
  Receipt Date: 20220829
  Transmission Date: 20221027
  Serious: Yes (Other)
  Sender: FDA-Public Use
  Company Number: TW-Merck Healthcare KGaA-9346573

PATIENT
  Age: 72 Year
  Sex: Male

DRUGS (1)
  1. BAVENCIO [Suspect]
     Active Substance: AVELUMAB
     Indication: Product used for unknown indication
     Route: 042

REACTIONS (3)
  - Gastric ulcer [Unknown]
  - Haematochezia [Unknown]
  - Paronychia [Unknown]

NARRATIVE: CASE EVENT DATE: 20220823
